FAERS Safety Report 8784280 (Version 1)
Quarter: 2012Q4

REPORT INFORMATION
  Report Type: Spontaneous
  Country: US (occurrence: None)
  Receive Date: 20120905
  Receipt Date: 20120905
  Transmission Date: 20130627
  Serious: Yes (Disabling)
  Sender: FDA-Public Use
  Company Number: None

PATIENT
  Age: 34 Year
  Sex: Male
  Weight: 81.65 kg

DRUGS (1)
  1. LEVAQUIN [Suspect]
     Indication: PNEUMONIA
     Dosage: 10    once a day
     Route: 048
     Dates: start: 20110214, end: 20120224

REACTIONS (9)
  - Rash [None]
  - Pain in extremity [None]
  - Pain in extremity [None]
  - Arthralgia [None]
  - Arthralgia [None]
  - Pain in extremity [None]
  - Muscular weakness [None]
  - Muscular weakness [None]
  - Pain in extremity [None]
